FAERS Safety Report 4532113-8 (Version None)
Quarter: 2004Q4

REPORT INFORMATION
  Report Type: 
  Country: None (occurrence: None)
  Receive Date: 20041217
  Receipt Date: 20041202
  Transmission Date: 20050328
  Serious: Yes (Hospitalization)
  Sender: FDA-Public Use
  Company Number: 2004AP05958

PATIENT
  Age: 63 Year
  Sex: Male

DRUGS (8)
  1. IRESSA [Suspect]
     Indication: LUNG ADENOCARCINOMA
     Dosage: 250 MG DAILY PO
     Route: 048
     Dates: start: 20041012, end: 20041028
  2. ALTAT [Concomitant]
  3. NORVASC [Concomitant]
  4. LENDORMIN [Concomitant]
  5. ALPRAZOLAM [Concomitant]
  6. CISPLATIN [Concomitant]
  7. GEMCITABINE [Concomitant]
  8. RADIATION THERAPY [Concomitant]

REACTIONS (3)
  - ACUTE FEBRILE NEUTROPHILIC DERMATOSIS [None]
  - LUNG ADENOCARCINOMA STAGE IV [None]
  - MALIGNANT NEOPLASM PROGRESSION [None]
